FAERS Safety Report 20651743 (Version 2)
Quarter: 2022Q2

REPORT INFORMATION
  Report Type: Spontaneous
  Country: FR (occurrence: FR)
  Receive Date: 20220330
  Receipt Date: 20220511
  Transmission Date: 20220721
  Serious: Yes (Other)
  Sender: FDA-Public Use
  Company Number: FR-AMGEN-FRASP2022054457

PATIENT
  Age: 62 Year
  Weight: 95 kg

DRUGS (1)
  1. OTEZLA [Suspect]
     Active Substance: APREMILAST
     Indication: Psoriasis
     Dosage: 30 MILLIGRAM, BID
     Route: 065
     Dates: start: 202111, end: 2022

REACTIONS (3)
  - Diverticular perforation [Unknown]
  - Peritonitis [Unknown]
  - Weight decreased [Unknown]

NARRATIVE: CASE EVENT DATE: 20211101
